FAERS Safety Report 24910793 (Version 2)
Quarter: 2025Q1

REPORT INFORMATION
  Report Type: Report from Study
  Country: US (occurrence: US)
  Receive Date: 20250131
  Receipt Date: 20250226
  Transmission Date: 20250408
  Serious: Yes (Death, Other)
  Sender: ACADIA PHARMACEUTICALS
  Company Number: US-ACADIA PHARMACEUTICALS INC.-ACA-2025-PIM-000972

PATIENT
  Sex: Male

DRUGS (11)
  1. NUPLAZID [Suspect]
     Active Substance: PIMAVANSERIN TARTRATE
     Indication: Parkinson^s disease psychosis
     Dosage: 34 MILLIGRAM, QD
     Route: 048
     Dates: start: 20231214, end: 20240207
  2. CARBIDOPA\LEVODOPA [Concomitant]
     Active Substance: CARBIDOPA\LEVODOPA
     Dates: start: 20230307, end: 20240216
  3. BACLOFEN [Concomitant]
     Active Substance: BACLOFEN
  4. BISACODYL [Concomitant]
     Active Substance: BISACODYL
  5. GLYCOPYRROLATE [Concomitant]
     Active Substance: GLYCOPYRROLATE
  6. LORAZEPAM [Concomitant]
     Active Substance: LORAZEPAM
  7. MIRTAZAPINE [Concomitant]
     Active Substance: MIRTAZAPINE
  8. MORPHINE [Concomitant]
     Active Substance: MORPHINE
  9. ZOFRAN [Concomitant]
     Active Substance: ONDANSETRON HYDROCHLORIDE
  10. SEROQUEL [Concomitant]
     Active Substance: QUETIAPINE FUMARATE
  11. TRAZODONE [Concomitant]
     Active Substance: TRAZODONE HYDROCHLORIDE

REACTIONS (3)
  - Dementia [Fatal]
  - Dysphagia [Fatal]
  - Hypoxia [Fatal]
